FAERS Safety Report 12798558 (Version 2)
Quarter: 2016Q4

REPORT INFORMATION
  Report Type: Spontaneous
  Country: US (occurrence: US)
  Receive Date: 20160930
  Receipt Date: 20161021
  Transmission Date: 20170207
  Serious: Yes (Other)
  Sender: FDA-Public Use
  Company Number: US-BAYER-2016-184279

PATIENT
  Age: 75 Year
  Sex: Female
  Weight: 68 kg

DRUGS (4)
  1. BAYER GENUINE ASPIRIN [Suspect]
     Active Substance: ASPIRIN
     Indication: MULTIPLE ALLERGIES
     Dosage: 1 DF, PRN
     Route: 048
  2. BAYER GENUINE ASPIRIN [Suspect]
     Active Substance: ASPIRIN
     Indication: SINUS DISORDER
     Dosage: 1 DF, PRN
     Route: 048
  3. BAYER GENUINE ASPIRIN [Suspect]
     Active Substance: ASPIRIN
     Indication: THROMBOSIS PROPHYLAXIS
  4. BAYER GENUINE ASPIRIN [Suspect]
     Active Substance: ASPIRIN
     Indication: PAIN
     Dosage: 1 DF, PRN
     Route: 048

REACTIONS (4)
  - Wrong technique in product usage process [Unknown]
  - Expired product administered [Unknown]
  - Large intestinal haemorrhage [Unknown]
  - Large intestinal haemorrhage [None]

NARRATIVE: CASE EVENT DATE: 20161003
